FAERS Safety Report 10167156 (Version 1)
Quarter: 2014Q2

REPORT INFORMATION
  Report Type: Spontaneous
  Country: DK (occurrence: FR)
  Receive Date: 20140512
  Receipt Date: 20140512
  Transmission Date: 20141212
  Serious: Yes (Hospitalization)
  Sender: FDA-Public Use
  Company Number: FR-FRI-1000067174

PATIENT
  Age: 84 Year
  Sex: Female

DRUGS (12)
  1. ESCITALOPRAM [Suspect]
     Dosage: 20 MG
     Route: 048
     Dates: end: 20140312
  2. ESCITALOPRAM [Suspect]
     Dosage: 10 MG
     Route: 048
     Dates: start: 20140313, end: 20140323
  3. ESCITALOPRAM [Suspect]
     Dosage: 5 MG
     Route: 048
     Dates: start: 20140324
  4. TRAMADOL [Suspect]
     Dosage: 100 MG
     Route: 048
     Dates: end: 20140313
  5. STALEVO [Suspect]
     Dosage: 3 DF
     Route: 048
     Dates: end: 20140317
  6. CALCIDOSE VITAMINE D 500 MG / 400 IU [Concomitant]
     Dosage: 2 DF
  7. MOPRAL [Concomitant]
     Dosage: 40 MG
  8. IMOVANE [Concomitant]
     Dosage: 7.5 MG
  9. KARDEGIC [Concomitant]
     Dosage: 160 MG
  10. LEVOTHYROX [Concomitant]
     Dosage: 50 MCG
  11. SERESTA [Concomitant]
     Dosage: 20 MG
     Dates: end: 20140322
  12. PARACETAMOL [Concomitant]
     Dosage: 2 DF EVERY 8 HOURS, IF NEEDED
     Route: 048

REACTIONS (4)
  - Abnormal behaviour [Recovered/Resolved]
  - Confusional state [Recovered/Resolved]
  - Agitation [Recovered/Resolved]
  - Off label use [Recovered/Resolved]
